FAERS Safety Report 7030786-1 (Version None)
Quarter: 2010Q4

REPORT INFORMATION
  Report Type: 
  Country: None (occurrence: None)
  Receive Date: 20101004
  Receipt Date: 20100918
  Transmission Date: 20110411
  Serious: Yes (Life-Threatening, Hospitalization, Other)
  Sender: FDA-Public Use
  Company Number: MC201000220

PATIENT
  Age: 88 Year
  Sex: Male
  Weight: 78 kg

DRUGS (10)
  1. ANGIOMAX [Suspect]
     Dosage: 12 ML, BOL 28 ML INTRAVENOUS,
     Route: 040
     Dates: start: 20100517, end: 20100517
  2. ANGIOMAX [Suspect]
     Dosage: 6 ML, BOLUS INTRAVENOUS
     Route: 040
     Dates: start: 20100517, end: 20100517
  3. HEPARIN [Concomitant]
  4. ASPIRIN [Concomitant]
  5. CLOPIDOGREL [Concomitant]
  6. ESOMEPRAZOLE (ESOMEPRAZOLE) [Concomitant]
  7. POTASSIUM CHLORIDE [Concomitant]
  8. ACETYLSALICYLATE LYSINE (ACETYLSALICYLATE LYSINE) [Concomitant]
  9. FUROSEMIDE [Concomitant]
  10. ATORVASTATIN (ATORVASTATIN) [Concomitant]

REACTIONS (5)
  - CORONARY ARTERY OCCLUSION [None]
  - CORONARY ARTERY THROMBOSIS [None]
  - PLATELET COUNT DECREASED [None]
  - RENAL FAILURE [None]
  - VENTRICULAR TACHYCARDIA [None]
